FAERS Safety Report 8759826 (Version 3)
Quarter: 2012Q4

REPORT INFORMATION
  Report Type: 
  Country: JP (occurrence: JP)
  Receive Date: 20120829
  Receipt Date: 20121114
  Transmission Date: 20130627
  Serious: Yes (Other)
  Sender: FDA-Public Use
  Company Number: JP-GILEAD-2012-0060452

PATIENT
  Sex: Female

DRUGS (12)
  1. HEPSERA [Suspect]
     Indication: CHRONIC HEPATITIS B
     Dosage: 10MG Per day
     Route: 048
     Dates: start: 20041213, end: 20120726
  2. BARACLUDE [Concomitant]
     Indication: CHRONIC HEPATITIS B
     Dosage: .5MG Per day
     Route: 048
  3. BARACLUDE [Concomitant]
     Dosage: .5MG Per day
     Route: 048
  4. BARACLUDE [Concomitant]
     Dosage: .5MG Per day
     Route: 048
  5. NORVASC [Concomitant]
     Indication: HYPERTENSION
     Dosage: 2.5MG Per day
     Route: 048
  6. NORVASC [Concomitant]
     Dosage: 2.5MG Per day
     Route: 048
  7. NORVASC [Concomitant]
     Dosage: 2.5MG Per day
     Route: 048
  8. PROMAC                             /01312301/ [Concomitant]
     Indication: PRODUCT USED FOR UNKNOWN INDICATION
     Route: 048
  9. NEUROTROPIN                        /00398601/ [Concomitant]
     Indication: PRODUCT USED FOR UNKNOWN INDICATION
     Route: 065
  10. URSO                               /00465701/ [Concomitant]
     Indication: PRODUCT USED FOR UNKNOWN INDICATION
     Route: 048
  11. BIO-THREE [Concomitant]
     Indication: PRODUCT USED FOR UNKNOWN INDICATION
     Route: 048
  12. BONALON [Concomitant]
     Indication: PRODUCT USED FOR UNKNOWN INDICATION
     Route: 048

REACTIONS (8)
  - Lumbar vertebral fracture [Recovering/Resolving]
  - Fanconi syndrome acquired [Recovering/Resolving]
  - Aminoaciduria [Unknown]
  - Blood phosphorus decreased [Unknown]
  - Blood uric acid decreased [Unknown]
  - Blood potassium decreased [Unknown]
  - Osteomalacia [Unknown]
  - Malaise [Unknown]
